FAERS Safety Report 7702017-8 (Version None)
Quarter: 2011Q3

REPORT INFORMATION
  Report Type: 
  Country: None (occurrence: None)
  Receive Date: 20110822
  Receipt Date: 20110817
  Transmission Date: 20111222
  Serious: Yes (Other)
  Sender: FDA-Public Use
  Company Number: PHHY2011GR73676

PATIENT
  Sex: Male

DRUGS (4)
  1. EXJADE [Suspect]
     Dosage: 25 MG/KG (3X500 MG), UNK
     Dates: end: 20110701
  2. CALCIORAL [Concomitant]
     Indication: OSTEOPOROSIS
  3. EXJADE [Suspect]
     Indication: THALASSAEMIA
     Dosage: 20 MG/KG (2X500 MG), UNK
     Dates: start: 20060901
  4. ONE-ALPHA [Concomitant]
     Indication: OSTEOPOROSIS

REACTIONS (3)
  - NEPHROLITHIASIS [None]
  - RENAL COLIC [None]
  - HAEMATURIA [None]
